FAERS Safety Report 9532295 (Version 1)
Quarter: 2013Q2

REPORT INFORMATION
  Report Type: Spontaneous
  Country: FR (occurrence: None)
  Receive Date: 20130403
  Receipt Date: 20130403
  Transmission Date: 20140414
  Serious: Yes (Hospitalization)
  Sender: FDA-Public Use
  Company Number: US-2011-10953

PATIENT
  Age: 35 Year
  Sex: Male

DRUGS (12)
  1. BUSULFEX [Suspect]
     Indication: ACUTE MYELOID LEUKAEMIA
     Route: 042
     Dates: start: 20111116
  2. CYCLOPHOSPHAMIDE [Suspect]
     Indication: ACUTE MYELOID LEUKAEMIA
     Route: 042
     Dates: start: 20111121, end: 20111122
  3. ZYLORIC (ALLOPURINOL) [Concomitant]
  4. CICLOSPORIN (CICLOSPORIN) [Concomitant]
  5. TRIFLUCAN (FLUCONAZOLE) [Concomitant]
  6. ZOVIRAX (ACICLOVIR SODIUM) [Concomitant]
  7. NEFOPAM (NEFOPAM HYDROCHLORIDE) [Concomitant]
  8. VANCOMYCIN (VANCOMYCIN HYDROCHLORIDE) [Concomitant]
  9. EUPANTOL (PANTOPRAZOLE SODIUM) [Concomitant]
  10. FORTUM (CEFTAZIDIME) [Concomitant]
  11. TAVANIC (LEVOFLOXACIN) [Concomitant]
  12. AMIKLIN (AMIKACIN SULFATE) [Concomitant]

REACTIONS (1)
  - Venoocclusive disease [None]
